FAERS Safety Report 5465320-0 (Version None)
Quarter: 2007Q3

REPORT INFORMATION
  Report Type: 
  Country: None (occurrence: None)
  Receive Date: 20070920
  Receipt Date: 20070920
  Transmission Date: 20080115
  Serious: No
  Sender: FDA-Public Use
  Company Number: None

PATIENT
  Sex: Male
  Weight: 92.5 kg

DRUGS (1)
  1. MYLOTARG [Suspect]
     Dosage: 12.9 MG

REACTIONS (3)
  - CARDIAC TAMPONADE [None]
  - INFUSION RELATED REACTION [None]
  - PERICARDIAL EFFUSION [None]
